FAERS Safety Report 6138440-5 (Version None)
Quarter: 2009Q1

REPORT INFORMATION
  Report Type: 
  Country: None (occurrence: None)
  Receive Date: 20090331
  Receipt Date: 20090323
  Transmission Date: 20090719
  Serious: Yes (Other)
  Sender: FDA-Public Use
  Company Number: GB-BRISTOL-MYERS SQUIBB COMPANY-14561518

PATIENT
  Age: 48 Year

DRUGS (10)
  1. DIDANOSINE [Suspect]
  2. EFAVIRENZ [Suspect]
  3. ACETYLSALICYLIC ACID [Suspect]
  4. STAVUDINE [Suspect]
  5. KALETRA [Suspect]
  6. TENOFOVIR [Suspect]
  7. RAMIPRIL [Suspect]
  8. ZIDOVUDINE [Suspect]
  9. LAMIVUDINE [Suspect]
  10. NELFINAVIR [Suspect]

REACTIONS (2)
  - DRUG RESISTANCE [None]
  - MYOCARDIAL INFARCTION [None]
